FAERS Safety Report 12463916 (Version 2)
Quarter: 2016Q2

REPORT INFORMATION
  Report Type: Spontaneous
  Country: TR (occurrence: TR)
  Receive Date: 20160614
  Receipt Date: 20160614
  Transmission Date: 20160815
  Serious: Yes (Death)
  Sender: FDA-Public Use
  Company Number: TR-BIOVITRUM-2016TR0418

PATIENT
  Age: 9 Month

DRUGS (2)
  1. NITISINONE [Suspect]
     Active Substance: NITISINONE
  2. NITISINONE [Suspect]
     Active Substance: NITISINONE
     Indication: TYROSINAEMIA

REACTIONS (2)
  - Sepsis [Fatal]
  - Pneumonia [Fatal]
